FAERS Safety Report 5598639-3 (Version None)
Quarter: 2008Q1

REPORT INFORMATION
  Report Type: 
  Country: None (occurrence: None)
  Receive Date: 20080122
  Receipt Date: 20080115
  Transmission Date: 20080703
  Serious: Yes (Other)
  Sender: FDA-Public Use
  Company Number: US-JNJFOC-20080103723

PATIENT
  Sex: Female
  Weight: 58.06 kg

DRUGS (1)
  1. REMICADE [Suspect]
     Indication: CROHN'S DISEASE
     Dosage: 3 VIALS, TREATED FOR 6 YEARS
     Route: 042

REACTIONS (2)
  - FISTULA [None]
  - INFUSION RELATED REACTION [None]
